FAERS Safety Report 10300455 (Version 2)
Quarter: 2014Q3

REPORT INFORMATION
  Report Type: Report from Study
  Country: CA (occurrence: CA)
  Receive Date: 20140713
  Receipt Date: 20140713
  Transmission Date: 20150326
  Serious: Yes (Life-Threatening, Hospitalization)
  Sender: FDA-Public Use
  Company Number: PHHY2014CA023178

PATIENT
  Age: 66 Year
  Sex: Female

DRUGS (15)
  1. AVAPRO [Concomitant]
     Active Substance: IRBESARTAN
     Dosage: UNK UKN, UNK
  2. AMPHOTERICIN [Concomitant]
     Active Substance: AMPHOTERICIN B
     Dosage: UNK
  3. INDOMETHACIN. [Concomitant]
     Active Substance: INDOMETHACIN
     Dosage: UNK UKN, UNK
  4. ACLASTA [Suspect]
     Active Substance: ZOLEDRONIC ACID
     Dosage: 5 MG, UNK
     Route: 042
     Dates: start: 20130314
  5. METFORMIN [Concomitant]
     Active Substance: METFORMIN HYDROCHLORIDE
     Dosage: UNK UKN, UNK
  6. LIPIDIL EZ [Concomitant]
     Active Substance: FENOFIBRATE
     Dosage: UNK UKN, UNK
  7. HERBAL NOS [Concomitant]
     Active Substance: HERBALS
     Dosage: UNK
  8. ACLASTA [Suspect]
     Active Substance: ZOLEDRONIC ACID
     Indication: OSTEOPOROSIS
     Dosage: 5 MG, UNK
     Route: 042
     Dates: start: 20120302
  9. ATORVASTATIN [Concomitant]
     Active Substance: ATORVASTATIN
     Dosage: UNK UKN, UNK
  10. CALCIUM [Concomitant]
     Active Substance: CALCIUM
     Dosage: UNK UKN, UNK
  11. VITAMIN D [Concomitant]
     Active Substance: CHOLECALCIFEROL
     Dosage: UNK UKN, UNK
  12. VITAMIN D3 [Concomitant]
     Active Substance: CHOLECALCIFEROL
     Dosage: UNK
  13. ATENOLOL. [Concomitant]
     Active Substance: ATENOLOL
     Dosage: UNK UKN, UNK
  14. VITAMIN C [Concomitant]
     Active Substance: ASCORBIC ACID
     Dosage: UNK UKN, UNK
  15. ACLASTA [Suspect]
     Active Substance: ZOLEDRONIC ACID
     Dosage: UNK
     Route: 042
     Dates: start: 20131214

REACTIONS (18)
  - Arthralgia [Unknown]
  - Sciatica [Recovered/Resolved]
  - Flank pain [Unknown]
  - Hypertension [Recovered/Resolved]
  - Renal failure [Unknown]
  - Inappropriate schedule of drug administration [Unknown]
  - Oesophageal candidiasis [Recovered/Resolved]
  - Renal failure acute [Recovered/Resolved]
  - Urine output decreased [Unknown]
  - Infection [Unknown]
  - Dehydration [Unknown]
  - Type 2 diabetes mellitus [Recovered/Resolved]
  - Costovertebral angle tenderness [Unknown]
  - Pyelonephritis [Unknown]
  - Vomiting [Recovered/Resolved]
  - Oedema [Unknown]
  - Pyrexia [Unknown]
  - Urine flow decreased [Unknown]

NARRATIVE: CASE EVENT DATE: 20140201
